FAERS Safety Report 8980770 (Version 1)
Quarter: 2012Q4

REPORT INFORMATION
  Report Type: 
  Country: US (occurrence: US)
  Receive Date: 20121221
  Receipt Date: 20121221
  Transmission Date: 20130627
  Serious: Yes (Death)
  Sender: FDA-Public Use
  Company Number: US-BRISTOL-MYERS SQUIBB COMPANY-17238403

PATIENT

DRUGS (3)
  1. ETOPOSIDE [Suspect]
     Indication: LYMPHOMA
     Dosage: Total dose:1600mg/m2
     Route: 042
  2. CARMUSTINE [Suspect]
     Indication: LYMPHOMA
     Dosage: Total dose:450mg/m2
     Route: 042
  3. CYCLOPHOSPHAMIDE [Suspect]
     Indication: LYMPHOMA
     Dosage: Total dose:6000mg/m2
     Route: 042

REACTIONS (1)
  - Venoocclusive liver disease [Fatal]
